APPROVED DRUG PRODUCT: PRAVASTATIN SODIUM
Active Ingredient: PRAVASTATIN SODIUM
Strength: 30MG
Dosage Form/Route: TABLET;ORAL
Application: A077730 | Product #003
Applicant: PLIVA HRVATSKA DOO
Approved: Nov 21, 2006 | RLD: No | RS: No | Type: DISCN